FAERS Safety Report 21709792 (Version 2)
Quarter: 2023Q2

REPORT INFORMATION
  Report Type: Spontaneous
  Country: AT (occurrence: AT)
  Receive Date: 20221210
  Receipt Date: 20230627
  Transmission Date: 20230722
  Serious: Yes (Hospitalization, Other)
  Sender: FDA-Public Use
  Company Number: AT-AMGEN-AUTSP2022208040

PATIENT
  Age: 32 Year
  Sex: Female
  Weight: 62 kg

DRUGS (21)
  1. XGEVA [Suspect]
     Active Substance: DENOSUMAB
     Indication: HER2 positive breast cancer
     Dosage: 120 MILLIGRAM, Q4WK
     Route: 058
     Dates: start: 20170621
  2. TRASTUZUMAB [Suspect]
     Active Substance: TRASTUZUMAB
     Indication: HER2 positive breast cancer
     Dosage: 8 MILLIGRAM/KILOGRAM, Q3WK
     Route: 040
     Dates: start: 20170621
  3. PERTUZUMAB [Suspect]
     Active Substance: PERTUZUMAB
     Indication: HER2 positive breast cancer
     Dosage: MOST RECENT DOSE PRIOR TO THE EVENT:8/JAN/2018
     Route: 040
     Dates: start: 20170621, end: 20170621
  4. ADO-TRASTUZUMAB EMTANSINE [Suspect]
     Active Substance: ADO-TRASTUZUMAB EMTANSINE
     Indication: HER2 positive breast cancer
     Route: 065
  5. LETROZOLE [Suspect]
     Active Substance: LETROZOLE
     Indication: HER2 positive breast cancer
     Dosage: MOST RECENT DOSE PRIOR TO AE 20/JAN/2020
     Route: 048
     Dates: start: 20180108
  6. EXEMESTANE [Suspect]
     Active Substance: EXEMESTANE
     Indication: HER2 positive breast cancer
     Dosage: 25 MILLIGRAM
     Route: 048
     Dates: start: 20200120
  7. LAPATINIB [Suspect]
     Active Substance: LAPATINIB
     Indication: HER2 positive breast cancer
     Dosage: 250 MILLIGRAM
     Route: 048
     Dates: start: 20201028
  8. GOSERELIN ACETATE [Suspect]
     Active Substance: GOSERELIN ACETATE
     Indication: HER2 positive breast cancer
     Dosage: 3.6 MILLIGRAM, Q4WK
     Route: 058
     Dates: start: 20180118
  9. DOCETAXEL [Suspect]
     Active Substance: DOCETAXEL
     Indication: HER2 positive breast cancer
     Dosage: 75 MILLIGRAM
     Route: 048
     Dates: start: 20170621
  10. DOCETAXEL [Suspect]
     Active Substance: DOCETAXEL
     Dosage: MOST RECENT DOSE PRIOR TO AE 15/NOV/2017
     Route: 040
     Dates: start: 20170621
  11. GOSERELIN [Concomitant]
     Active Substance: GOSERELIN
     Dosage: ONGOING = CHECKED
     Dates: start: 20180129
  12. ZOFRAN [Concomitant]
     Active Substance: ONDANSETRON HYDROCHLORIDE
     Dosage: UNK
     Dates: start: 20170621, end: 20201006
  13. ZOFRAN [Concomitant]
     Active Substance: ONDANSETRON HYDROCHLORIDE
     Dosage: UNK
     Dates: start: 20180115, end: 20210722
  14. ESOMEPRAZOLE [Concomitant]
     Active Substance: ESOMEPRAZOLE
     Dosage: ONGOING = CHECKED
     Dates: start: 20191230
  15. LEVETIRACETAM [Concomitant]
     Active Substance: LEVETIRACETAM
     Dosage: UNK
     Dates: start: 20201002
  16. LEVETIRACETAM [Concomitant]
     Active Substance: LEVETIRACETAM
     Dosage: ONGOING = CHECKED
     Dates: start: 20200102
  17. Novalgin [Concomitant]
     Dosage: UNK
     Dates: start: 20180515
  18. ESOMEPRAZOLE [Concomitant]
     Active Substance: ESOMEPRAZOLE
     Dosage: ONGOING = CHECKED
     Dates: start: 20170621
  19. CALCIUM CARBONATE\CHOLECALCIFEROL [Concomitant]
     Active Substance: CALCIUM CARBONATE\CHOLECALCIFEROL
     Dosage: ONGOING = CHECKED
     Dates: start: 20171025
  20. LOPERAMIDE HYDROCHLORIDE [Concomitant]
     Active Substance: LOPERAMIDE HYDROCHLORIDE
     Dosage: ONGOING = CHECKED
     Dates: start: 20201028
  21. LIPEGFILGRASTIM [Concomitant]
     Active Substance: LIPEGFILGRASTIM
     Dosage: ONGOING = NOT CHECKED
     Dates: start: 20200120

REACTIONS (2)
  - Syncope [Recovered/Resolved]
  - Off label use [Unknown]

NARRATIVE: CASE EVENT DATE: 20170621
